FAERS Safety Report 10971744 (Version 1)
Quarter: 2015Q1

REPORT INFORMATION
  Report Type: Spontaneous
  Country: US (occurrence: None)
  Receive Date: 20150330
  Receipt Date: 20150330
  Transmission Date: 20150721
  Serious: Yes (Disabling)
  Sender: FDA-Public Use
  Company Number: None

PATIENT
  Age: 61 Year
  Sex: Male
  Weight: 106.6 kg

DRUGS (7)
  1. AMOX TR-K CLV [Concomitant]
     Active Substance: AMOXICILLIN\CLAVULANATE POTASSIUM
  2. PROMETHAZINE-DM SYRUP [Concomitant]
  3. VENTOLIN HFA [Concomitant]
     Active Substance: ALBUTEROL SULFATE
  4. AZITHROMYCIN [Suspect]
     Active Substance: AZITHROMYCIN ANHYDROUS
     Indication: PYREXIA
     Route: 048
     Dates: start: 20150320, end: 20150320
  5. AZITHROMYCIN [Suspect]
     Active Substance: AZITHROMYCIN ANHYDROUS
     Indication: CHILLS
     Route: 048
     Dates: start: 20150320, end: 20150320
  6. OFLOXACIN. [Concomitant]
     Active Substance: OFLOXACIN
  7. CALCIUM [Concomitant]
     Active Substance: CALCIUM

REACTIONS (4)
  - Deafness unilateral [None]
  - Vision blurred [None]
  - Tinnitus [None]
  - Eyelid ptosis [None]

NARRATIVE: CASE EVENT DATE: 20150330
